FAERS Safety Report 6956383-1 (Version None)
Quarter: 2010Q3

REPORT INFORMATION
  Report Type: 
  Country: None (occurrence: None)
  Receive Date: 20100830
  Receipt Date: 20100823
  Transmission Date: 20110219
  Serious: Yes (Other)
  Sender: FDA-Public Use
  Company Number: A0878138A

PATIENT
  Age: 61 Year
  Sex: Female
  Weight: 47.3 kg

DRUGS (7)
  1. WELLBUTRIN SR [Suspect]
     Indication: DEPRESSION
     Dosage: 100MGD PER DAY
     Route: 048
     Dates: end: 20100719
  2. TOVIAZ [Suspect]
     Indication: HYPERTONIC BLADDER
     Dosage: 4MG PER DAY
     Route: 048
     Dates: start: 20100716, end: 20100719
  3. OXYBUTYNIN [Concomitant]
     Route: 062
  4. PREMPRO [Concomitant]
  5. PRILOSEC [Concomitant]
  6. PLAQUENIL [Concomitant]
  7. VITAMIN B-12 [Concomitant]

REACTIONS (11)
  - DEHYDRATION [None]
  - DIZZINESS [None]
  - DRUG INTERACTION [None]
  - DYSARTHRIA [None]
  - FEELING HOT [None]
  - FLUSHING [None]
  - HYPOHIDROSIS [None]
  - LIMB DISCOMFORT [None]
  - MUSCULAR WEAKNESS [None]
  - SOMNOLENCE [None]
  - VOMITING [None]
